FAERS Safety Report 19168664 (Version 1)
Quarter: 2021Q2

REPORT INFORMATION
  Report Type: Spontaneous
  Country: US (occurrence: US)
  Receive Date: 20210421
  Receipt Date: 20210421
  Transmission Date: 20210717
  Serious: Yes (Other)
  Sender: FDA-Public Use
  Company Number: None

PATIENT
  Age: 18 Year
  Sex: Male
  Weight: 49.5 kg

DRUGS (2)
  1. COVID VACCINE [Concomitant]
  2. ADVATE [Suspect]
     Active Substance: ANTIHEMOPHILIC FACTOR, HUMAN RECOMBINANT
     Indication: FACTOR VIII DEFICIENCY
     Dosage: ?          OTHER FREQUENCY:M/W/F;?
     Route: 042

REACTIONS (6)
  - Rash [None]
  - Chest pain [None]
  - Flushing [None]
  - Arthralgia [None]
  - Glassy eyes [None]
  - Abdominal pain [None]

NARRATIVE: CASE EVENT DATE: 20210419
